FAERS Safety Report 8676819 (Version 2)
Quarter: 2012Q4

REPORT INFORMATION
  Report Type: 
  Country: US (occurrence: US)
  Receive Date: 20120723
  Receipt Date: 20120829
  Transmission Date: 20130627
  Serious: No
  Sender: FDA-Public Use
  Company Number: US-PFIZER INC-2012175494

PATIENT

DRUGS (3)
  1. CHANTIX [Suspect]
     Dosage: UNK
  2. CELEBREX [Suspect]
     Dosage: UNK
  3. VIAGRA [Suspect]
     Dosage: UNK

REACTIONS (4)
  - Malaise [Unknown]
  - Anxiety [Unknown]
  - Speech disorder [Unknown]
  - Malaise [Unknown]
